FAERS Safety Report 12376013 (Version 1)
Quarter: 2016Q2

REPORT INFORMATION
  Report Type: Spontaneous
  Country: US (occurrence: US)
  Receive Date: 20160517
  Receipt Date: 20160517
  Transmission Date: 20160815
  Serious: No
  Sender: FDA-Public Use
  Company Number: US-LUNDBECK-DKLU2012450

PATIENT
  Sex: Female

DRUGS (1)
  1. NORTHERA [Suspect]
     Active Substance: DROXIDOPA
     Indication: PRODUCT USED FOR UNKNOWN INDICATION
     Route: 065
     Dates: start: 20160328

REACTIONS (6)
  - Dizziness [Unknown]
  - Fatigue [Unknown]
  - Disturbance in attention [Unknown]
  - Hypotension [Unknown]
  - Headache [Unknown]
  - Drug ineffective [Unknown]
